FAERS Safety Report 5568126-7 (Version None)
Quarter: 2007Q4

REPORT INFORMATION
  Report Type: 
  Country: None (occurrence: None)
  Receive Date: 20071218
  Receipt Date: 20071218
  Transmission Date: 20080405
  Serious: Yes (Hospitalization)
  Sender: FDA-Public Use
  Company Number: None

PATIENT
  Age: 79 Year
  Sex: Male

DRUGS (1)
  1. LINEZOLID [Suspect]
     Indication: OSTEOMYELITIS
     Dosage: 600MG BID PO
     Route: 048
     Dates: start: 20070706, end: 20070828

REACTIONS (3)
  - NAUSEA [None]
  - PANCYTOPENIA [None]
  - VOMITING [None]
